FAERS Safety Report 5354389-X (Version None)
Quarter: 2007Q2

REPORT INFORMATION
  Report Type: 
  Country: None (occurrence: None)
  Receive Date: 20070612
  Receipt Date: 20070602
  Transmission Date: 20071010
  Serious: Yes (Other)
  Sender: FDA-Public Use
  Company Number: US-JNJFOC-20070601562

PATIENT
  Sex: Female

DRUGS (4)
  1. MONISTAT 1 COMBINATION PACK DAY OR NIGHT [Suspect]
     Route: 067
  2. MONISTAT 1 COMBINATION PACK DAY OR NIGHT [Suspect]
     Indication: FUNGAL INFECTION
     Route: 067
  3. MONISTAT 1 COMBINATION PACK DAY OR NIGHT [Suspect]
     Route: 061
  4. MONISTAT 1 COMBINATION PACK DAY OR NIGHT [Suspect]
     Route: 061

REACTIONS (4)
  - DRUG INEFFECTIVE [None]
  - PAIN [None]
  - VAGINAL SWELLING [None]
  - VULVOVAGINAL PRURITUS [None]
